FAERS Safety Report 8496828-1 (Version None)
Quarter: 2012Q3

REPORT INFORMATION
  Report Type: 
  Country: None (occurrence: None)
  Receive Date: 20120709
  Receipt Date: 20120705
  Transmission Date: 20120928
  Serious: Yes (Life-Threatening, Hospitalization)
  Sender: FDA-Public Use
  Company Number: US-CELGENEUS-163-21880-12052635

PATIENT
  Sex: Male
  Weight: 89.892 kg

DRUGS (6)
  1. ZOMETA [Concomitant]
     Route: 050
  2. DEXAMETHASONE [Concomitant]
     Route: 048
  3. REVLIMID [Suspect]
     Indication: MULTIPLE MYELOMA
     Dosage: 25 MILLIGRAM
     Route: 048
     Dates: start: 20120307
  4. CRESTOR [Concomitant]
     Route: 048
  5. ASPIRIN [Concomitant]
     Dosage: 81 MILLIGRAM
     Route: 048
  6. MULTI-VITAMINS [Concomitant]
     Route: 048

REACTIONS (3)
  - URINARY TRACT INFECTION [None]
  - MYOCARDIAL INFARCTION [None]
  - INTRACARDIAC THROMBUS [None]
